FAERS Safety Report 24338318 (Version 1)
Quarter: 2024Q3

REPORT INFORMATION
  Report Type: Spontaneous
  Country: US (occurrence: US)
  Receive Date: 20240919
  Receipt Date: 20240919
  Transmission Date: 20241017
  Serious: Yes (Other)
  Sender: SANOFI AVENTIS
  Company Number: US-SA-2024SA266740

PATIENT
  Sex: Female

DRUGS (1)
  1. DUPIXENT [Suspect]
     Active Substance: DUPILUMAB
     Indication: Dermatitis atopic
     Dosage: 300 MG, QOW
     Route: 058
     Dates: start: 202302

REACTIONS (13)
  - Diverticulitis [Unknown]
  - Dupuytren^s contracture [Unknown]
  - Condition aggravated [Unknown]
  - Paraesthesia [Recovering/Resolving]
  - Tongue blistering [Unknown]
  - Flatulence [Unknown]
  - Diarrhoea [Unknown]
  - Synovial cyst [Unknown]
  - Condition aggravated [Unknown]
  - Oral herpes [Unknown]
  - Arthralgia [Unknown]
  - Sensitive skin [Recovering/Resolving]
  - Therapeutic response shortened [Recovering/Resolving]
